FAERS Safety Report 24842631 (Version 1)
Quarter: 2025Q1

REPORT INFORMATION
  Report Type: Other
  Country: CA (occurrence: CA)
  Receive Date: 20250115
  Receipt Date: 20250115
  Transmission Date: 20250409
  Serious: Yes (Other)
  Sender: WOODWARD PHARMA SERVICES
  Company Number: CA-WW-2025-10110

PATIENT
  Age: 53 Year
  Sex: Female

DRUGS (2)
  1. FLUCONAZOLE [Suspect]
     Active Substance: FLUCONAZOLE
     Indication: Candida infection
     Route: 065
  2. CLOTRIMAZOLE [Suspect]
     Active Substance: CLOTRIMAZOLE
     Indication: Candida infection
     Route: 065

REACTIONS (2)
  - Disease recurrence [Recovering/Resolving]
  - Drug resistance [Unknown]
